FAERS Safety Report 8482762-X (Version None)
Quarter: 2012Q3

REPORT INFORMATION
  Report Type: 
  Country: None (occurrence: None)
  Receive Date: 20120702
  Receipt Date: 20120618
  Transmission Date: 20120928
  Serious: Yes (Other)
  Sender: FDA-Public Use
  Company Number: US-SHIRE-ALL1-2012-03012

PATIENT
  Age: 18 Year
  Sex: Male

DRUGS (6)
  1. ADDERALL XR 10 [Suspect]
     Dosage: UNK, UNKNOWN
     Route: 048
  2. ADDERALL XR 10 [Suspect]
     Dosage: 60 MG, 1X/DAY:QD
     Route: 048
  3. ADDERALL XR 10 [Suspect]
     Indication: PRODUCT USED FOR UNKNOWN INDICATION
     Dosage: 30 MG, 1X/DAY:QD
     Route: 048
  4. ADDERALL 5 [Concomitant]
     Dosage: 10 MG, 1X/DAY:QD
     Route: 048
  5. ADDERALL 5 [Concomitant]
     Dosage: UNK, UNKNOWN
     Route: 048
  6. ADDERALL 5 [Concomitant]
     Indication: PRODUCT USED FOR UNKNOWN INDICATION
     Dosage: 20 MG, 1X/DAY:QD
     Route: 048

REACTIONS (6)
  - SOMNOLENCE [None]
  - HEADACHE [None]
  - OVERDOSE [None]
  - BLOOD PRESSURE DECREASED [None]
  - PLATELET COUNT DECREASED [None]
  - FATIGUE [None]
